FAERS Safety Report 24212770 (Version 1)
Quarter: 2024Q3

REPORT INFORMATION
  Report Type: Spontaneous
  Country: US (occurrence: US)
  Receive Date: 20240815
  Receipt Date: 20240815
  Transmission Date: 20241016
  Serious: Yes (Life-Threatening, Hospitalization, Other)
  Sender: HIKMA
  Company Number: US-MLMSERVICE-20240429-PI043992-00229-1

PATIENT

DRUGS (4)
  1. MORPHINE [Suspect]
     Active Substance: MORPHINE
     Indication: Pain management
     Dosage: LOW DOSE
     Route: 065
  2. ACETAMINOPHEN [Concomitant]
     Active Substance: ACETAMINOPHEN
     Indication: Pain management
     Dosage: 1000 MILLIGRAM
     Route: 048
  3. KETOROLAC [Concomitant]
     Active Substance: KETOROLAC TROMETHAMINE
     Indication: Pain management
     Dosage: 15 MILLIGRAM
     Route: 042
  4. OXYGEN [Concomitant]
     Active Substance: OXYGEN
     Indication: Oxygen therapy
     Dosage: VENTURI MASK
     Route: 042

REACTIONS (3)
  - Respiratory failure [Recovered/Resolved]
  - Respiratory acidosis [Recovered/Resolved]
  - Respiratory depression [Recovered/Resolved]
